FAERS Safety Report 5766100-9 (Version None)
Quarter: 2008Q2

REPORT INFORMATION
  Report Type: 
  Country: None (occurrence: None)
  Receive Date: 20080611
  Receipt Date: 20080530
  Transmission Date: 20081010
  Serious: Yes (Death, Other)
  Sender: FDA-Public Use
  Company Number: GB-PFIZER INC-2008047091

PATIENT
  Age: 44 Year
  Sex: Female
  Weight: 51 kg

DRUGS (2)
  1. CHANTIX [Suspect]
  2. HERBAL PREPARATION [Concomitant]

REACTIONS (2)
  - DEATH [None]
  - SYNCOPE [None]
